FAERS Safety Report 8883385 (Version 1)
Quarter: 2012Q4

REPORT INFORMATION
  Report Type: 
  Country: FR (occurrence: FR)
  Receive Date: 20121102
  Receipt Date: 20121102
  Transmission Date: 20130627
  Serious: Yes (Hospitalization)
  Sender: FDA-Public Use
  Company Number: FR-ASTRAZENECA-2012SE81903

PATIENT
  Sex: Male

DRUGS (3)
  1. INEXIUM [Suspect]
     Route: 048
     Dates: start: 20120419, end: 20120510
  2. CIPROFLOXACINE [Suspect]
     Route: 048
     Dates: start: 20120420, end: 20120510
  3. PIPERACILLINE TAZOBACTAM [Suspect]
     Route: 042
     Dates: start: 20120420, end: 20120507

REACTIONS (2)
  - Interstitial lung disease [Recovered/Resolved]
  - Pleural effusion [Recovered/Resolved]
